FAERS Safety Report 9060544 (Version 1)
Quarter: 2013Q1

REPORT INFORMATION
  Report Type: Spontaneous
  Country: US (occurrence: US)
  Receive Date: 20130212
  Receipt Date: 20130212
  Transmission Date: 20140127
  Serious: No
  Sender: FDA-Public Use
  Company Number: US-009507513-1301USA011656

PATIENT
  Sex: Male

DRUGS (2)
  1. AZASITE [Suspect]
     Indication: DRY EYE
     Dosage: 2 GTT, QD
     Route: 047
     Dates: start: 20130117
  2. AZASITE [Suspect]
     Indication: EYE INFECTION

REACTIONS (3)
  - Drug dose omission [Unknown]
  - Product packaging quantity issue [Unknown]
  - Dry eye [Unknown]
